FAERS Safety Report 22611049 (Version 1)
Quarter: 2023Q2

REPORT INFORMATION
  Report Type: Spontaneous
  Country: US (occurrence: None)
  Receive Date: 20230615
  Receipt Date: 20230615
  Transmission Date: 20230721
  Serious: No
  Sender: FDA-Public Use
  Company Number: None

PATIENT
  Sex: Female

DRUGS (16)
  1. IBRANCE [Suspect]
     Active Substance: PALBOCICLIB
     Indication: Breast cancer female
     Dosage: FREQUENCY : DAILY;?OTHER ROUTE : PO 21D ON 7D OFF;?
     Route: 050
  2. ASPIRIN [Concomitant]
  3. BACLOFEN [Concomitant]
     Active Substance: BACLOFEN
  4. CALCIUM [Concomitant]
  5. FISH OIL [Concomitant]
     Active Substance: FISH OIL
  6. FLUTICASONE [Concomitant]
     Active Substance: FLUTICASONE
  7. ACETAMINOPHEN\HYDROCODONE [Concomitant]
     Active Substance: ACETAMINOPHEN\HYDROCODONE
  8. LETROZOLE [Concomitant]
     Active Substance: LETROZOLE
  9. LEVOTHYROXINE [Concomitant]
  10. LIOTHYRONINE [Concomitant]
  11. OMEPRAZOLE [Concomitant]
     Active Substance: OMEPRAZOLE
  12. PHENTERMINE [Concomitant]
     Active Substance: PHENTERMINE
  13. VITAMIN D3 [Concomitant]
     Active Substance: CHOLECALCIFEROL
  14. XANAX [Concomitant]
     Active Substance: ALPRAZOLAM
  15. XGEVA [Concomitant]
     Active Substance: DENOSUMAB
  16. ZOFRAN [Concomitant]
     Active Substance: ONDANSETRON HYDROCHLORIDE

REACTIONS (3)
  - Therapy interrupted [None]
  - Breast cancer female [None]
  - Malignant neoplasm progression [None]
